FAERS Safety Report 23414134 (Version 1)
Quarter: 2024Q1

REPORT INFORMATION
  Report Type: Spontaneous
  Country: GB (occurrence: GB)
  Receive Date: 20240117
  Receipt Date: 20240117
  Transmission Date: 20240409
  Serious: Yes (Hospitalization, Disabling, Other)
  Sender: FDA-Public Use
  Company Number: None

PATIENT
  Age: 46 Year
  Sex: Female
  Weight: 49 kg

DRUGS (2)
  1. ATORVASTATIN [Suspect]
     Active Substance: ATORVASTATIN
     Dosage: UNK
     Route: 065
     Dates: start: 20210628, end: 20230810
  2. CLOPIDOGREL BISULFATE [Suspect]
     Active Substance: CLOPIDOGREL BISULFATE
     Indication: Cerebrovascular accident
     Dosage: 75 MG
     Route: 065
     Dates: start: 20210624, end: 20230810

REACTIONS (6)
  - Executive dysfunction [Not Recovered/Not Resolved]
  - Head discomfort [Recovered/Resolved]
  - Suicidal behaviour [Recovering/Resolving]
  - Confusional state [Recovering/Resolving]
  - Haemorrhage [Unknown]
  - Amnesia [Recovered/Resolved with Sequelae]

NARRATIVE: CASE EVENT DATE: 20220101
